FAERS Safety Report 12556802 (Version 7)
Quarter: 2016Q4

REPORT INFORMATION
  Report Type: Report from Study
  Country: None (occurrence: BE)
  Receive Date: 20160714
  Receipt Date: 20161130
  Transmission Date: 20170207
  Serious: Yes (Hospitalization)
  Sender: FDA-Public Use
  Company Number: BE-ABBVIE-16K-013-1672517-00

PATIENT
  Sex: Male

DRUGS (20)
  1. LANOXIN [Concomitant]
     Active Substance: DIGOXIN
     Indication: PRODUCT USED FOR UNKNOWN INDICATION
  2. SERLAIN [Concomitant]
     Active Substance: SERTRALINE HYDROCHLORIDE
     Indication: PRODUCT USED FOR UNKNOWN INDICATION
  3. DUODOPA [Suspect]
     Active Substance: CARBIDOPA\LEVODOPA
     Dosage: AM DOSE=6.5ML; CD=4.1ML/H DURING 16HRS; ED=1ML; ND=1.7ML/H DURING 8HRS
     Route: 050
     Dates: start: 20160105, end: 20160712
  4. RIVOTRIL [Concomitant]
     Active Substance: CLONAZEPAM
     Indication: PRODUCT USED FOR UNKNOWN INDICATION
  5. DUODOPA [Suspect]
     Active Substance: CARBIDOPA\LEVODOPA
     Dosage: AM=2ML;CD=3ML/H DURING 16 HRS;ND=1.7 ML/H DURING 8 HRS; ED=1ML
     Route: 050
     Dates: start: 20160712, end: 20161005
  6. XARELTO [Concomitant]
     Active Substance: RIVAROXABAN
     Indication: PRODUCT USED FOR UNKNOWN INDICATION
  7. DUODOPA [Suspect]
     Active Substance: CARBIDOPA\LEVODOPA
     Indication: PARKINSON^S DISEASE
     Dosage: AM DOSE=4ML; CD=2.6ML/H DURING 16HRS; ED=1ML; ND=1.5ML/H DURING 16HRS
     Route: 050
     Dates: start: 20130114, end: 20130115
  8. LANOXIN [Concomitant]
     Active Substance: DIGOXIN
  9. PANTOMED [Concomitant]
     Active Substance: DEXPANTHENOL
     Indication: PRODUCT USED FOR UNKNOWN INDICATION
  10. APOCARD [Concomitant]
     Active Substance: FLECAINIDE ACETATE
     Indication: PRODUCT USED FOR UNKNOWN INDICATION
  11. APOCARD [Concomitant]
     Active Substance: FLECAINIDE ACETATE
  12. HYGROTON [Concomitant]
     Active Substance: CHLORTHALIDONE
     Indication: PRODUCT USED FOR UNKNOWN INDICATION
  13. DUODOPA [Suspect]
     Active Substance: CARBIDOPA\LEVODOPA
     Dosage: DOSAGE CONTINUOUSLY MONITORED AND ADJUSTED
     Route: 050
     Dates: start: 20130115, end: 20160105
  14. DUODOPA [Suspect]
     Active Substance: CARBIDOPA\LEVODOPA
     Dosage: AM DOSE: 5.0
     Route: 050
     Dates: end: 20161122
  15. DUODOPA [Suspect]
     Active Substance: CARBIDOPA\LEVODOPA
     Dosage: AM DOSE: 4.7
     Route: 050
     Dates: start: 20161122, end: 20161122
  16. BEFACT [Concomitant]
     Indication: PRODUCT USED FOR UNKNOWN INDICATION
  17. HYGROTON [Concomitant]
     Active Substance: CHLORTHALIDONE
  18. DAFALGAN FORTE [Concomitant]
     Indication: PRODUCT USED FOR UNKNOWN INDICATION
  19. DUODOPA [Suspect]
     Active Substance: CARBIDOPA\LEVODOPA
     Dosage: AM= 2 ML; CD= 3.4 ML/H DURING 16 HRS; ND= 2 ML/H DURING 8 HRS; ED= 3.4 ML
     Route: 050
     Dates: start: 20161005
  20. DUODOPA [Suspect]
     Active Substance: CARBIDOPA\LEVODOPA
     Dosage: AM DOSE=5.2ML; CD=3.4ML/H DURING 16HRS; ED=1ML
     Route: 050
     Dates: start: 20161122

REACTIONS (9)
  - Fall [Unknown]
  - Incorrect dose administered [Recovered/Resolved]
  - Drug effect incomplete [Unknown]
  - Hallucination [Unknown]
  - Emotional disorder [Unknown]
  - Confusional state [Unknown]
  - Intentional device misuse [Recovered/Resolved]
  - General physical health deterioration [Unknown]
  - Cognitive disorder [Unknown]
